FAERS Safety Report 7931964-7 (Version None)
Quarter: 2011Q4

REPORT INFORMATION
  Report Type: 
  Country: None (occurrence: None)
  Receive Date: 20111121
  Receipt Date: 20111117
  Transmission Date: 20120403
  Serious: Yes (Other)
  Sender: FDA-Public Use
  Company Number: PL-ROCHE-1014393

PATIENT
  Sex: Male
  Weight: 80 kg

DRUGS (1)
  1. BONIVA [Suspect]
     Indication: PARAPLEGIA
     Route: 048
     Dates: start: 20090101, end: 20110919

REACTIONS (1)
  - BONE DISORDER [None]
